FAERS Safety Report 10221340 (Version 1)
Quarter: 2014Q2

REPORT INFORMATION
  Report Type: Spontaneous
  Country: US (occurrence: US)
  Receive Date: 20140606
  Receipt Date: 20140606
  Transmission Date: 20141212
  Serious: No
  Sender: FDA-Public Use
  Company Number: US-GLAXOSMITHKLINE-A1072813A

PATIENT
  Age: 63 Year
  Sex: Female

DRUGS (4)
  1. BREO ELLIPTA [Suspect]
     Indication: CHRONIC OBSTRUCTIVE PULMONARY DISEASE
     Route: 055
     Dates: start: 2013
  2. VENTOLIN HFA [Concomitant]
  3. ZYRTEC [Concomitant]
  4. SINGULAIR [Concomitant]

REACTIONS (2)
  - Rash [Unknown]
  - Rash macular [Unknown]
